FAERS Safety Report 4929302-7 (Version None)
Quarter: 2006Q1

REPORT INFORMATION
  Report Type: 
  Country: None (occurrence: None)
  Receive Date: 20060301
  Receipt Date: 20060223
  Transmission Date: 20060701
  Serious: Yes (Other)
  Sender: FDA-Public Use
  Company Number: US-BRISTOL-MYERS SQUIBB COMPANY-13293782

PATIENT
  Age: 65 Year
  Sex: Female
  Weight: 98 kg

DRUGS (3)
  1. TEQUIN [Suspect]
     Indication: BRONCHITIS
     Dates: start: 20060214, end: 20060218
  2. METFORMIN HYDROCHLORIDE [Concomitant]
     Dates: end: 20060101
  3. AMARYL [Concomitant]

REACTIONS (1)
  - BLOOD GLUCOSE INCREASED [None]
